FAERS Safety Report 5841505-6 (Version None)
Quarter: 2008Q3

REPORT INFORMATION
  Report Type: 
  Country: None (occurrence: None)
  Receive Date: 20080812
  Receipt Date: 20080808
  Transmission Date: 20090109
  Serious: Yes (Hospitalization)
  Sender: FDA-Public Use
  Company Number: US-WYE-H03073808

PATIENT
  Sex: Male
  Weight: 77.18 kg

DRUGS (16)
  1. TIGECYCLINE [Suspect]
     Indication: CELLULITIS
     Route: 042
     Dates: start: 20080307, end: 20080312
  2. SENNA [Suspect]
     Indication: CONSTIPATION
     Dosage: UNKNOWN
     Route: 065
     Dates: start: 20080307, end: 20080310
  3. DOCUSATE [Suspect]
     Indication: CONSTIPATION
     Dosage: UNKNOWN
     Route: 065
     Dates: start: 20080307, end: 20080310
  4. COUMADIN [Concomitant]
     Indication: ATRIAL FIBRILLATION
     Route: 065
     Dates: start: 20080307
  5. CALCIUM WITH VITAMIN D [Concomitant]
     Indication: MEDICAL DIET
     Dosage: UNKNOWN
     Route: 065
     Dates: start: 20080307
  6. DIGOXIN [Concomitant]
     Indication: CARDIAC FAILURE CONGESTIVE
     Dosage: UNKNOWN
     Route: 065
     Dates: start: 20080307
  7. DIGOXIN [Concomitant]
     Indication: ATRIAL FIBRILLATION
  8. EPOETIN ALFA [Concomitant]
     Dosage: UNKNOWN
     Route: 065
     Dates: start: 20080307
  9. METOPROLOL SUCCINATE [Concomitant]
     Indication: HYPERTENSION
     Dosage: UNKNOWN
     Route: 065
     Dates: start: 20080307
  10. HYOSCINE [Concomitant]
     Indication: VERTIGO
     Route: 062
     Dates: start: 20080307
  11. SODIUM CHLORIDE 0.9% [Concomitant]
     Indication: DEHYDRATION
     Dosage: 125 ML/HR
     Route: 065
     Dates: start: 20080307, end: 20080318
  12. TERAZOSIN HCL [Concomitant]
     Indication: BENIGN PROSTATIC HYPERPLASIA
     Dosage: 2 MG Q HS
     Route: 048
     Dates: start: 20070307
  13. NEUPOGEN [Suspect]
     Indication: NEUTROPENIA
     Route: 065
     Dates: start: 20070302, end: 20080312
  14. VITAMINS, OTHER COMBINATIONS [Concomitant]
     Indication: NUTRITIONAL SUPPORT
     Dosage: UNKNOWN
     Route: 065
     Dates: start: 20080307
  15. MEGESTROL ACETATE [Concomitant]
     Indication: DECREASED APPETITE
     Route: 065
     Dates: start: 20080307
  16. BISACODYL [Suspect]
     Indication: CONSTIPATION
     Dosage: UNKNOWN
     Route: 065
     Dates: start: 20080307, end: 20080310

REACTIONS (1)
  - DIARRHOEA [None]
